FAERS Safety Report 14959756 (Version 1)
Quarter: 2018Q2

REPORT INFORMATION
  Report Type: Report from Study
  Country: FR (occurrence: FR)
  Receive Date: 20180531
  Receipt Date: 20180531
  Transmission Date: 20180711
  Serious: Yes (Hospitalization)
  Sender: FDA-Public Use
  Company Number: FR-PFIZER INC-2018215678

PATIENT
  Age: 69 Year
  Sex: Male
  Weight: 97 kg

DRUGS (11)
  1. FLUOROURACIL. [Suspect]
     Active Substance: FLUOROURACIL
     Dosage: 4800 MG, CYCLIC
     Route: 042
     Dates: start: 20151102
  2. LOPERAMIDE [Concomitant]
     Active Substance: LOPERAMIDE
     Indication: PROPHYLAXIS
     Dosage: UNK
     Dates: start: 20151116
  3. FLUOROURACIL. [Suspect]
     Active Substance: FLUOROURACIL
     Indication: COLORECTAL CANCER METASTATIC
     Dosage: 800 MG, CYCLIC
     Route: 040
     Dates: start: 20151102, end: 20151102
  4. LEUCOVORIN. [Suspect]
     Active Substance: LEUCOVORIN
     Dosage: 400 MG, CYCLIC
     Route: 041
     Dates: start: 20151228, end: 20151228
  5. AFLIBERCEPT [Suspect]
     Active Substance: AFLIBERCEPT
     Indication: COLORECTAL CANCER METASTATIC
     Dosage: 400 MG, CYCLIC
     Route: 041
     Dates: start: 20151102, end: 20151102
  6. IRINOTECAN HCL [Suspect]
     Active Substance: IRINOTECAN HYDROCHLORIDE
     Indication: COLORECTAL CANCER METASTATIC
     Dosage: 300 MG, CYCLIC
     Route: 041
     Dates: start: 20151102, end: 20151102
  7. IRINOTECAN HCL [Suspect]
     Active Substance: IRINOTECAN HYDROCHLORIDE
     Dosage: 300 MG, CYCLIC
     Route: 041
     Dates: start: 20151228, end: 20151228
  8. FLUOROURACIL. [Suspect]
     Active Substance: FLUOROURACIL
     Dosage: 800 MG, CYCLIC
     Route: 040
     Dates: start: 20151228, end: 20151228
  9. FLUOROURACIL. [Suspect]
     Active Substance: FLUOROURACIL
     Dosage: 4800 MG, CYCLIC
     Route: 041
     Dates: start: 20151228
  10. LEUCOVORIN. [Suspect]
     Active Substance: LEUCOVORIN
     Indication: COLORECTAL CANCER METASTATIC
     Dosage: 400 MG, CYCLIC
     Route: 041
     Dates: start: 20151102, end: 20151102
  11. AFLIBERCEPT [Suspect]
     Active Substance: AFLIBERCEPT
     Dosage: 400 MG, CYCLIC
     Route: 041
     Dates: start: 20151228, end: 20151228

REACTIONS (7)
  - Abdominal pain upper [Recovering/Resolving]
  - Asthenia [Recovering/Resolving]
  - Abdominal pain [Not Recovered/Not Resolved]
  - Weight decreased [Recovering/Resolving]
  - Small intestinal obstruction [Recovering/Resolving]
  - Epistaxis [Recovered/Resolved]
  - Rectal haemorrhage [Recovered/Resolved]

NARRATIVE: CASE EVENT DATE: 20151228
